FAERS Safety Report 10075701 (Version 1)
Quarter: 2014Q2

REPORT INFORMATION
  Report Type: Spontaneous
  Country: US (occurrence: None)
  Receive Date: 20140411
  Receipt Date: 20140411
  Transmission Date: 20141212
  Serious: Yes (Hospitalization)
  Sender: FDA-Public Use
  Company Number: None

PATIENT
  Age: 21 Year
  Sex: Female
  Weight: 71 kg

DRUGS (4)
  1. NITROFURANTOIN [Suspect]
     Indication: URINARY TRACT INFECTION
     Dosage: 1 PILL
     Route: 048
     Dates: start: 20140404, end: 20140408
  2. PRENATAL VITAMIN [Concomitant]
  3. RANITIDINE [Concomitant]
  4. ONDANSETRON [Concomitant]

REACTIONS (3)
  - Nausea [None]
  - Vomiting [None]
  - Jaundice [None]
